FAERS Safety Report 14322116 (Version 2)
Quarter: 2018Q1

REPORT INFORMATION
  Report Type: Report from Study
  Country: PL (occurrence: PL)
  Receive Date: 20171225
  Receipt Date: 20180116
  Transmission Date: 20180509
  Serious: Yes (Death, Hospitalization)
  Sender: FDA-Public Use
  Company Number: PL-ROCHE-2043479

PATIENT
  Age: 59 Year
  Sex: Male
  Weight: 65 kg

DRUGS (6)
  1. DEPAKINE CHRONO [Concomitant]
     Active Substance: VALPROATE SODIUM
     Route: 065
     Dates: start: 20161227
  2. METOCARD ZK [Concomitant]
     Active Substance: METOPROLOL TARTRATE
     Route: 065
     Dates: start: 2010
  3. EUTHYROX [Concomitant]
     Active Substance: LEVOTHYROXINE SODIUM
     Route: 065
     Dates: start: 20170912
  4. THIAMAZOLE [Concomitant]
     Active Substance: METHIMAZOLE
     Indication: HYPERTHYROIDISM
     Route: 065
     Dates: start: 20170607
  5. BERODUAL [Concomitant]
     Active Substance: FENOTEROL HYDROBROMIDE\IPRATROPIUM BROMIDE
     Indication: CHRONIC OBSTRUCTIVE PULMONARY DISEASE
     Route: 065
     Dates: start: 2007
  6. ATEZOLIZUMAB. [Suspect]
     Active Substance: ATEZOLIZUMAB
     Indication: NON-SMALL CELL LUNG CANCER STAGE IV
     Dosage: MOST RECENT DOSE (1200 MG) 28/NOV/2017 AT 15.05
     Route: 042
     Dates: start: 20170405

REACTIONS (1)
  - Asthenia [Fatal]

NARRATIVE: CASE EVENT DATE: 20171214
